FAERS Safety Report 7243867-4 (Version None)
Quarter: 2011Q1

REPORT INFORMATION
  Report Type: 
  Country: None (occurrence: None)
  Receive Date: 20110125
  Receipt Date: 20110121
  Transmission Date: 20110831
  Serious: Yes (Hospitalization)
  Sender: FDA-Public Use
  Company Number: A0901820B

PATIENT
  Age: 58 Year
  Weight: 76.4 kg

DRUGS (2)
  1. IXEMPRA KIT [Suspect]
     Indication: NEOPLASM
     Dosage: 62MG CYCLIC
     Route: 042
     Dates: start: 20101102
  2. PAZOPANIB [Suspect]
     Indication: NEOPLASM
     Dosage: 800MG PER DAY
     Route: 048
     Dates: start: 20101102

REACTIONS (4)
  - NAUSEA [None]
  - HYPOKALAEMIA [None]
  - VOMITING [None]
  - ATRIAL FIBRILLATION [None]
